FAERS Safety Report 11001920 (Version 3)
Quarter: 2015Q3

REPORT INFORMATION
  Report Type: Report from Study
  Country: AU (occurrence: AU)
  Receive Date: 20150408
  Receipt Date: 20150923
  Transmission Date: 20151125
  Serious: Yes (Other)
  Sender: FDA-Public Use
  Company Number: PHHY2015AU036538

PATIENT
  Sex: Male

DRUGS (2)
  1. SANDOSTATIN LAR DEPOT [Suspect]
     Active Substance: OCTREOTIDE ACETATE
     Indication: NEUROENDOCRINE TUMOUR
     Dosage: 20 MG
     Route: 030
  2. SANDOSTATIN LAR DEPOT [Suspect]
     Active Substance: OCTREOTIDE ACETATE
     Dosage: MORE THAN 30 MG, UNK
     Route: 030

REACTIONS (6)
  - Second primary malignancy [Unknown]
  - Metastases to liver [Unknown]
  - Flushing [Unknown]
  - Diarrhoea [Unknown]
  - Lung neoplasm malignant [Unknown]
  - Carcinoid tumour [Unknown]
